FAERS Safety Report 12920639 (Version 1)
Quarter: 2016Q4

REPORT INFORMATION
  Report Type: Report from Study
  Country: ES (occurrence: ES)
  Receive Date: 20161108
  Receipt Date: 20161108
  Transmission Date: 20170207
  Serious: Yes (Other)
  Sender: FDA-Public Use
  Company Number: ES-PFIZER INC-2016513183

PATIENT
  Age: 77 Year
  Sex: Female

DRUGS (3)
  1. HALOPERIDOL. [Suspect]
     Active Substance: HALOPERIDOL
     Dosage: 4 DROPS, UNK
     Route: 065
     Dates: start: 20160913, end: 20160916
  2. LYRICA [Suspect]
     Active Substance: PREGABALIN
     Dosage: 25 MG, 2X/DAY
     Route: 048
     Dates: start: 20160913
  3. EBASTEL FORTE FLAS [Suspect]
     Active Substance: EBASTINE
     Dosage: 20 MG, 1X/DAY
     Route: 048
     Dates: start: 20160913

REACTIONS (2)
  - Hallucination [Unknown]
  - Abdominal tenderness [Unknown]

NARRATIVE: CASE EVENT DATE: 20160916
